FAERS Safety Report 15935640 (Version 1)
Quarter: 2019Q1

REPORT INFORMATION
  Report Type: Spontaneous
  Country: US (occurrence: US)
  Receive Date: 20190208
  Receipt Date: 20190208
  Transmission Date: 20190417
  Serious: No
  Sender: FDA-Public Use
  Company Number: US-BIOGEN-2019BI00693055

PATIENT
  Sex: Female

DRUGS (1)
  1. TECFIDERA [Suspect]
     Active Substance: DIMETHYL FUMARATE
     Indication: MULTIPLE SCLEROSIS
     Route: 048

REACTIONS (7)
  - Malaise [Unknown]
  - Lip discolouration [Unknown]
  - Yellow skin [Unknown]
  - Skin lesion [Unknown]
  - Amenorrhoea [Unknown]
  - Nail ridging [Unknown]
  - Ocular icterus [Unknown]
